FAERS Safety Report 12833287 (Version 2)
Quarter: 2016Q4

REPORT INFORMATION
  Report Type: Spontaneous
  Country: US (occurrence: US)
  Receive Date: 20161010
  Receipt Date: 20161027
  Transmission Date: 20170207
  Serious: Yes (Death)
  Sender: FDA-Public Use
  Company Number: US-TAIHO ONCOLOGY INC-EU-2016-02599

PATIENT
  Age: 63 Year
  Sex: Male

DRUGS (4)
  1. DEXAMETHASONE. [Concomitant]
     Active Substance: DEXAMETHASONE
     Dosage: NI
  2. ONDANSETRON [Concomitant]
     Active Substance: ONDANSETRON
     Dosage: NI
  3. LONSURF [Suspect]
     Active Substance: TIPIRACIL HYDROCHLORIDE\TRIFLURIDINE
     Indication: RECTAL CANCER METASTATIC
     Dosage: CYCLE 2
     Route: 048
     Dates: start: 20160812
  4. EMEND [Concomitant]
     Active Substance: APREPITANT
     Dosage: NI

REACTIONS (2)
  - Disease progression [Fatal]
  - Pain [Unknown]

NARRATIVE: CASE EVENT DATE: 2016
